FAERS Safety Report 6533880-4 (Version None)
Quarter: 2010Q1

REPORT INFORMATION
  Report Type: 
  Country: None (occurrence: None)
  Receive Date: 20100111
  Receipt Date: 20090727
  Transmission Date: 20100710
  Serious: No
  Sender: FDA-Public Use
  Company Number: US-ABBOTT-09P-163-0588198-00

PATIENT
  Sex: Female
  Weight: 52.21 kg

DRUGS (1)
  1. VICODIN [Suspect]
     Indication: PROCEDURAL PAIN
     Dosage: TOOK ONE DOSE

REACTIONS (2)
  - HEADACHE [None]
  - NAUSEA [None]
